FAERS Safety Report 6017456-3 (Version None)
Quarter: 2008Q4

REPORT INFORMATION
  Report Type: 
  Country: None (occurrence: None)
  Receive Date: 20081223
  Receipt Date: 20081210
  Transmission Date: 20090506
  Serious: Yes (Other)
  Sender: FDA-Public Use
  Company Number: PHHO2007MX17240

PATIENT
  Sex: Female

DRUGS (1)
  1. LAMISIL [Suspect]
     Indication: ONYCHOMYCOSIS
     Dosage: 250 MG/DAY (1 TABLET/DAY)
     Route: 048
     Dates: start: 20070601, end: 20070601

REACTIONS (2)
  - DRUG INTERACTION [None]
  - TREMOR [None]
